FAERS Safety Report 9306440 (Version 8)
Quarter: 2014Q3

REPORT INFORMATION
  Report Type: Spontaneous
  Country: US (occurrence: US)
  Receive Date: 20130523
  Receipt Date: 20140721
  Transmission Date: 20150326
  Serious: Yes (Disabling)
  Sender: FDA-Public Use
  Company Number: US-MERCK-1305USA013043

PATIENT
  Sex: Male

DRUGS (3)
  1. MINOCYCLINE [Concomitant]
     Active Substance: MINOCYCLINE\MINOCYCLINE HYDROCHLORIDE
     Indication: ACNE
     Dosage: UNK
     Dates: start: 1998
  2. PROPECIA [Suspect]
     Active Substance: FINASTERIDE
     Dosage: 1 MG, DAILY
     Route: 048
     Dates: start: 20091230, end: 201102
  3. PROPECIA [Suspect]
     Active Substance: FINASTERIDE
     Indication: ANDROGENETIC ALOPECIA
     Dosage: 1 MG, DAILY
     Route: 048
     Dates: start: 200505, end: 200910

REACTIONS (18)
  - Hypogonadism [Not Recovered/Not Resolved]
  - Hypogonadism male [Not Recovered/Not Resolved]
  - Depression [Not Recovered/Not Resolved]
  - Emotional disorder [Unknown]
  - Inguinal hernia [Unknown]
  - Organic erectile dysfunction [Not Recovered/Not Resolved]
  - Testicular pain [Not Recovered/Not Resolved]
  - Libido decreased [Not Recovered/Not Resolved]
  - Sexual relationship change [Unknown]
  - Drug withdrawal syndrome [Unknown]
  - Erectile dysfunction [Not Recovered/Not Resolved]
  - Upper respiratory tract infection [Unknown]
  - Erectile dysfunction [Not Recovered/Not Resolved]
  - Varicocele [Unknown]
  - Anxiety [Not Recovered/Not Resolved]
  - Sexual dysfunction [Not Recovered/Not Resolved]
  - Semen volume decreased [Not Recovered/Not Resolved]
  - Lower urinary tract symptoms [Not Recovered/Not Resolved]

NARRATIVE: CASE EVENT DATE: 20060823
